FAERS Safety Report 18757791 (Version 2)
Quarter: 2021Q1

REPORT INFORMATION
  Report Type: Spontaneous
  Country: US (occurrence: US)
  Receive Date: 20210119
  Receipt Date: 20210129
  Transmission Date: 20210419
  Serious: No
  Sender: FDA-Public Use
  Company Number: US-MATRIXX INITIATIVES, INC.-2105540

PATIENT
  Age: 57 Year
  Sex: Female
  Weight: 77.27 kg

DRUGS (4)
  1. LEVOTHYROXINE. [Concomitant]
     Active Substance: LEVOTHYROXINE
  2. VITAMIN C [Concomitant]
     Active Substance: ASCORBIC ACID
  3. TURMERIC [Concomitant]
     Active Substance: HERBALS\TURMERIC
  4. ZICAM COLD REMEDY NASAL SPRAY [Suspect]
     Active Substance: HOMEOPATHICS
     Route: 045
     Dates: start: 20201218, end: 20201225

REACTIONS (1)
  - Anosmia [None]
